FAERS Safety Report 5212904-0 (Version None)
Quarter: 2007Q1

REPORT INFORMATION
  Report Type: 
  Country: None (occurrence: None)
  Receive Date: 20070116
  Receipt Date: 20061228
  Transmission Date: 20070707
  Serious: Yes (Congenital Anomaly)
  Sender: FDA-Public Use
  Company Number: 8020984

PATIENT
  Sex: Male
  Weight: 7.59 kg

DRUGS (6)
  1. KEPPRA [Suspect]
     Indication: EPILEPSY
     Dosage: 1500 MG, TRP
     Route: 064
     Dates: start: 20051101, end: 20060806
  2. KEPPRA [Suspect]
     Indication: EPILEPSY
     Dosage: 1500 MG TRM
     Route: 063
     Dates: start: 20060806
  3. FOLIC ACID [Concomitant]
  4. FOLIC ACID [Concomitant]
  5. PRENATAL VITAMINS [Concomitant]
  6. PRENATAL VITAMINS [Concomitant]

REACTIONS (3)
  - DRUG EXPOSURE DURING PREGNANCY [None]
  - DRUG EXPOSURE VIA BREAST MILK [None]
  - VENTRICULAR SEPTAL DEFECT [None]
